FAERS Safety Report 5130394-3 (Version None)
Quarter: 2006Q4

REPORT INFORMATION
  Report Type: 
  Country: None (occurrence: None)
  Receive Date: 20061019
  Receipt Date: 20061012
  Transmission Date: 20070319
  Serious: Yes (Hospitalization)
  Sender: FDA-Public Use
  Company Number: JP-AVENTIS-200613196JP

PATIENT
  Age: 79 Year
  Sex: Female

DRUGS (11)
  1. ALLEGRA [Suspect]
     Indication: DERMATITIS
     Route: 048
     Dates: start: 20060912, end: 20060915
  2. PANDEL                             /00028608/ [Concomitant]
     Indication: PROPHYLAXIS
     Route: 061
     Dates: start: 20060912, end: 20060922
  3. SATOSALBE [Concomitant]
     Indication: PRURITUS
     Route: 061
     Dates: start: 20060912, end: 20060922
  4. LANDEL [Concomitant]
     Dates: start: 20060912, end: 20060922
  5. MAINTATE [Concomitant]
     Dates: start: 20060912, end: 20060922
  6. JUVELA                             /00110503/ [Concomitant]
     Dates: start: 20060912, end: 20060922
  7. MEILAX [Concomitant]
     Dates: start: 20060912, end: 20060922
  8. CEPHADOL [Concomitant]
     Dates: start: 20060912, end: 20060922
  9. METHYCOBAL                         /00056201/ [Concomitant]
     Dates: start: 20060912, end: 20060922
  10. TIMOPTIC [Concomitant]
     Route: 047
     Dates: start: 20060912, end: 20060922
  11. TRUSOPT [Concomitant]
     Route: 047
     Dates: start: 20060912, end: 20060922

REACTIONS (1)
  - VISUAL ACUITY REDUCED [None]
